FAERS Safety Report 7750422-6 (Version None)
Quarter: 2011Q3

REPORT INFORMATION
  Report Type: 
  Country: None (occurrence: None)
  Receive Date: 20110825
  Receipt Date: 20110502
  Transmission Date: 20111222
  Serious: No
  Sender: FDA-Public Use
  Company Number: 328461

PATIENT
  Sex: Male

DRUGS (7)
  1. VICTOZA [Suspect]
     Indication: PRODUCT USED FOR UNKNOWN INDICATION
     Dosage: 0.6 MG, QD, SUBCUTANEOUS ; 0.6 MG, QD, SUBCUTANEOUS
     Route: 058
     Dates: start: 20101001
  2. VICTOZA [Suspect]
     Indication: PRODUCT USED FOR UNKNOWN INDICATION
     Dosage: 0.6 MG, QD, SUBCUTANEOUS ; 0.6 MG, QD, SUBCUTANEOUS
     Route: 058
     Dates: start: 20101001
  3. MEVACOR [Concomitant]
  4. NIACIN [Concomitant]
  5. METFORMIN HCL [Concomitant]
  6. FISH OIL (FISH OIL) [Concomitant]
  7. ACTOS [Concomitant]

REACTIONS (3)
  - FATIGUE [None]
  - BLOOD GLUCOSE INCREASED [None]
  - ABDOMINAL PAIN [None]
